FAERS Safety Report 8422327-9 (Version None)
Quarter: 2012Q2

REPORT INFORMATION
  Report Type: 
  Country: None (occurrence: None)
  Receive Date: 20120608
  Receipt Date: 20120603
  Transmission Date: 20120825
  Serious: Yes (Hospitalization, Other)
  Sender: FDA-Public Use
  Company Number: PL-ROCHE-1074673

PATIENT
  Age: 36 Year
  Weight: 90 kg

DRUGS (1)
  1. TRASTUZUMAB [Suspect]
     Indication: PRODUCT USED FOR UNKNOWN INDICATION

REACTIONS (2)
  - CIRCULATORY COLLAPSE [None]
  - LEFT VENTRICULAR DYSFUNCTION [None]
